FAERS Safety Report 5236243-7 (Version None)
Quarter: 2007Q1

REPORT INFORMATION
  Report Type: 
  Country: None (occurrence: None)
  Receive Date: 20061208
  Receipt Date: 20050811
  Transmission Date: 20070707
  Serious: Yes (Other)
  Sender: FDA-Public Use
  Company Number: 2005UW06789

PATIENT
  Age: 72 Year
  Sex: Female
  Weight: 43.998 kg

DRUGS (8)
  1. CRESTOR [Suspect]
     Indication: BLOOD CHOLESTEROL INCREASED
     Dosage: 10 MG PO
     Route: 048
     Dates: start: 20050418
  2. BENICAR [Concomitant]
  3. NORVASC [Concomitant]
  4. ACEBUTOLOL [Concomitant]
  5. VITAMINS [Concomitant]
  6. FOLIC ACID [Concomitant]
  7. CALCIUM [Concomitant]
  8. ACTINAL [Concomitant]

REACTIONS (3)
  - ANOREXIA [None]
  - MUSCLE SPASMS [None]
  - PAIN IN EXTREMITY [None]
